FAERS Safety Report 20542492 (Version 1)
Quarter: 2022Q1

REPORT INFORMATION
  Report Type: Spontaneous
  Country: JP (occurrence: JP)
  Receive Date: 20220302
  Receipt Date: 20220302
  Transmission Date: 20220423
  Serious: Yes (Death, Hospitalization, Other)
  Sender: FDA-Public Use
  Company Number: JP-CHUGAI-2022005411

PATIENT
  Age: 74 Year
  Sex: Male
  Weight: 45.5 kg

DRUGS (40)
  1. TECENTRIQ [Suspect]
     Active Substance: ATEZOLIZUMAB
     Indication: Lung adenocarcinoma
     Route: 041
     Dates: start: 20200925, end: 20200925
  2. TECENTRIQ [Suspect]
     Active Substance: ATEZOLIZUMAB
     Route: 041
     Dates: start: 20201023, end: 20201023
  3. TECENTRIQ [Suspect]
     Active Substance: ATEZOLIZUMAB
     Route: 041
     Dates: start: 20201120, end: 20201120
  4. TECENTRIQ [Suspect]
     Active Substance: ATEZOLIZUMAB
     Route: 041
     Dates: start: 20201228, end: 20201228
  5. TECENTRIQ [Suspect]
     Active Substance: ATEZOLIZUMAB
     Route: 041
     Dates: start: 20210115, end: 20210115
  6. TECENTRIQ [Suspect]
     Active Substance: ATEZOLIZUMAB
     Route: 041
     Dates: start: 20210205, end: 20210205
  7. TECENTRIQ [Suspect]
     Active Substance: ATEZOLIZUMAB
     Route: 041
     Dates: start: 20210226, end: 20210226
  8. TECENTRIQ [Suspect]
     Active Substance: ATEZOLIZUMAB
     Route: 041
     Dates: start: 20210319, end: 20210319
  9. TECENTRIQ [Suspect]
     Active Substance: ATEZOLIZUMAB
     Route: 041
     Dates: start: 20210409, end: 20210409
  10. TECENTRIQ [Suspect]
     Active Substance: ATEZOLIZUMAB
     Route: 041
     Dates: start: 20210507, end: 20210507
  11. TECENTRIQ [Suspect]
     Active Substance: ATEZOLIZUMAB
     Route: 041
     Dates: start: 20210528, end: 20210528
  12. TECENTRIQ [Suspect]
     Active Substance: ATEZOLIZUMAB
     Route: 041
     Dates: start: 20210618, end: 20210618
  13. AVASTIN [Suspect]
     Active Substance: BEVACIZUMAB
     Indication: Lung adenocarcinoma
     Route: 041
     Dates: start: 20200925, end: 20200925
  14. AVASTIN [Suspect]
     Active Substance: BEVACIZUMAB
     Route: 041
     Dates: start: 20201023, end: 20201023
  15. AVASTIN [Suspect]
     Active Substance: BEVACIZUMAB
     Route: 041
     Dates: start: 20201120, end: 20201120
  16. AVASTIN [Suspect]
     Active Substance: BEVACIZUMAB
     Route: 041
     Dates: start: 20201228, end: 20201228
  17. AVASTIN [Suspect]
     Active Substance: BEVACIZUMAB
     Route: 041
     Dates: start: 20210115, end: 20210115
  18. AVASTIN [Suspect]
     Active Substance: BEVACIZUMAB
     Route: 041
     Dates: start: 20210205, end: 20210205
  19. AVASTIN [Suspect]
     Active Substance: BEVACIZUMAB
     Route: 041
     Dates: start: 20210226, end: 20210226
  20. AVASTIN [Suspect]
     Active Substance: BEVACIZUMAB
     Route: 041
     Dates: start: 20210319, end: 20210319
  21. AVASTIN [Suspect]
     Active Substance: BEVACIZUMAB
     Route: 041
     Dates: start: 20210409, end: 20210409
  22. AVASTIN [Suspect]
     Active Substance: BEVACIZUMAB
     Route: 041
     Dates: start: 20210507, end: 20210507
  23. AVASTIN [Suspect]
     Active Substance: BEVACIZUMAB
     Route: 041
     Dates: start: 20210528, end: 20210528
  24. AVASTIN [Suspect]
     Active Substance: BEVACIZUMAB
     Route: 041
     Dates: start: 20210618, end: 20210618
  25. AVASTIN [Suspect]
     Active Substance: BEVACIZUMAB
     Route: 041
     Dates: start: 20210910, end: 20210910
  26. CELLCEPT [Suspect]
     Active Substance: MYCOPHENOLATE MOFETIL
     Indication: Immune-mediated cholangitis
     Dosage: 1000MG/DAY
     Route: 048
     Dates: start: 20210816
  27. CELLCEPT [Suspect]
     Active Substance: MYCOPHENOLATE MOFETIL
     Indication: Immune-mediated hepatic disorder
     Dosage: 2000MG/DAY
     Route: 048
     Dates: start: 20210917, end: 20210924
  28. CELLCEPT [Suspect]
     Active Substance: MYCOPHENOLATE MOFETIL
     Route: 048
     Dates: start: 20211215
  29. AZATHIOPRINE [Suspect]
     Active Substance: AZATHIOPRINE
     Indication: Liver disorder
     Route: 048
     Dates: start: 20200924, end: 20211215
  30. CARBOPLATIN [Suspect]
     Active Substance: CARBOPLATIN
     Indication: Lung adenocarcinoma
     Route: 041
     Dates: start: 20200925, end: 20200925
  31. CARBOPLATIN [Suspect]
     Active Substance: CARBOPLATIN
     Dosage: UNK
     Route: 041
     Dates: start: 20201023, end: 20201023
  32. CARBOPLATIN [Suspect]
     Active Substance: CARBOPLATIN
     Route: 041
     Dates: start: 20201120, end: 20201120
  33. CARBOPLATIN [Suspect]
     Active Substance: CARBOPLATIN
     Route: 041
     Dates: start: 20201228, end: 20201228
  34. PACLITAXEL [Suspect]
     Active Substance: PACLITAXEL
     Indication: Lung adenocarcinoma
     Route: 041
     Dates: start: 20200925, end: 20200925
  35. PACLITAXEL [Suspect]
     Active Substance: PACLITAXEL
     Route: 041
     Dates: start: 20201023, end: 20201023
  36. PACLITAXEL [Suspect]
     Active Substance: PACLITAXEL
     Route: 041
     Dates: start: 20201120, end: 20201120
  37. PACLITAXEL [Suspect]
     Active Substance: PACLITAXEL
     Route: 041
     Dates: start: 20201228, end: 20201228
  38. BELSOMRA [Concomitant]
     Active Substance: SUVOREXANT
     Dosage: 15 MILLIGRAM, HS
     Route: 048
     Dates: start: 202108
  39. MICONAZOLE [Concomitant]
     Active Substance: MICONAZOLE
     Dosage: 1 DOSAGE FORM, QID
     Route: 048
     Dates: start: 20210924
  40. ATOVAQUONE [Concomitant]
     Active Substance: ATOVAQUONE
     Dosage: 2 DOSAGE FORM, QD
     Route: 048
     Dates: start: 20210924

REACTIONS (8)
  - Immune-mediated cholangitis [Fatal]
  - Myocarditis [Fatal]
  - Liver abscess [Unknown]
  - Enterobacter bacteraemia [Unknown]
  - Immune-mediated hepatic disorder [Fatal]
  - Acute kidney injury [Unknown]
  - Gait disturbance [Unknown]
  - Off label use [Unknown]

NARRATIVE: CASE EVENT DATE: 20210629
